FAERS Safety Report 20569064 (Version 2)
Quarter: 2022Q3

REPORT INFORMATION
  Report Type: Spontaneous
  Country: US (occurrence: None)
  Receive Date: 20220308
  Receipt Date: 20220826
  Transmission Date: 20221027
  Serious: Yes (Death, Other)
  Sender: FDA-Public Use
  Company Number: 2022A099436

PATIENT
  Age: 46 Year
  Sex: Male

DRUGS (49)
  1. NEXIUM [Suspect]
     Active Substance: ESOMEPRAZOLE MAGNESIUM
     Indication: Gastrooesophageal reflux disease
     Route: 048
     Dates: start: 2005, end: 2010
  2. NEXIUM [Suspect]
     Active Substance: ESOMEPRAZOLE MAGNESIUM
     Indication: Gastrooesophageal reflux disease
     Route: 042
  3. PRILOSEC [Suspect]
     Active Substance: OMEPRAZOLE MAGNESIUM
     Indication: Gastrooesophageal reflux disease
     Dosage: GENERIC
     Route: 065
     Dates: start: 2009, end: 2020
  4. PROTONIX [Suspect]
     Active Substance: PANTOPRAZOLE SODIUM
     Indication: Gastrooesophageal reflux disease
     Route: 065
     Dates: start: 2005, end: 2010
  5. PROTONIX [Suspect]
     Active Substance: PANTOPRAZOLE SODIUM
     Indication: Gastrooesophageal reflux disease
     Route: 042
  6. TRAMADOL [Concomitant]
     Active Substance: TRAMADOL
     Indication: Analgesic therapy
     Dates: start: 2019, end: 2020
  7. AMOXICILLIN [Concomitant]
     Active Substance: AMOXICILLIN
     Indication: Infection
     Dates: start: 2012
  8. AZITHROMYCIN [Concomitant]
     Active Substance: AZITHROMYCIN
     Indication: Infection
     Dates: start: 2016, end: 2019
  9. CEPHALEXIN [Concomitant]
     Active Substance: CEPHALEXIN
     Indication: Infection
     Dates: start: 2010, end: 2016
  10. CIPROFLOXACIN [Concomitant]
     Active Substance: CIPROFLOXACIN
     Indication: Infection
     Dates: start: 2009, end: 2012
  11. CIPRO [Concomitant]
     Active Substance: CIPROFLOXACIN HYDROCHLORIDE
     Indication: Infection
     Dates: start: 2009
  12. GENTAMICIN [Concomitant]
     Active Substance: GENTAMICIN
     Indication: Infection
     Dates: start: 2010
  13. LEVOFLOXACIN [Concomitant]
     Active Substance: LEVOFLOXACIN
     Indication: Infection
     Dates: start: 2016, end: 2018
  14. SULFADIAZINE [Concomitant]
     Active Substance: SULFADIAZINE
     Indication: Infection
     Dates: start: 2009, end: 2011
  15. VANCOMYCIN [Concomitant]
     Active Substance: VANCOMYCIN
     Indication: Infection
     Dates: start: 2012
  16. BENEZAPRIL [Concomitant]
     Indication: Hypertension
     Dates: start: 2018
  17. LISINOPRIL [Concomitant]
     Active Substance: LISINOPRIL
     Indication: Hypertension
     Dates: start: 2009, end: 2012
  18. ZESTRIL [Concomitant]
     Active Substance: LISINOPRIL
     Indication: Hypertension
     Dates: start: 2012
  19. LOSARTAN [Concomitant]
     Active Substance: LOSARTAN
     Indication: Hypertension
     Dates: start: 2010, end: 2012
  20. COZAAR [Concomitant]
     Active Substance: LOSARTAN POTASSIUM
     Indication: Hypertension
     Dates: start: 2009, end: 2012
  21. FUROSEMIDE [Concomitant]
     Active Substance: FUROSEMIDE
     Dates: start: 2009, end: 2019
  22. LASIX [Concomitant]
     Active Substance: FUROSEMIDE
     Dates: start: 2009, end: 2012
  23. HYDROCHLOROTHIAZIDE [Concomitant]
     Active Substance: HYDROCHLOROTHIAZIDE
     Indication: Hypertension
     Dates: start: 2011, end: 2012
  24. ACETYLSALICYLIC ACID/RAMIPRIL/ATORVASTATIN/METOPROLOL [Concomitant]
     Indication: Blood cholesterol increased
     Dates: start: 2016, end: 2019
  25. PRAVASTATIN [Concomitant]
     Active Substance: PRAVASTATIN
     Indication: Blood cholesterol increased
     Dates: start: 2009
  26. SIMVASTATIN [Concomitant]
     Active Substance: SIMVASTATIN
     Indication: Blood cholesterol increased
     Dates: start: 2016, end: 2019
  27. ZOCOR [Concomitant]
     Active Substance: SIMVASTATIN
     Indication: Blood cholesterol increased
     Dates: start: 2009
  28. HYDRALAZINE [Concomitant]
     Active Substance: HYDRALAZINE HYDROCHLORIDE
     Indication: Hypertension
     Dates: start: 2010, end: 2018
  29. CLOPIDOGREL [Concomitant]
     Active Substance: CLOPIDOGREL BISULFATE
     Indication: Anticoagulant therapy
     Dates: start: 2016, end: 2020
  30. PLAVIX [Concomitant]
     Active Substance: CLOPIDOGREL BISULFATE
     Indication: Anticoagulant therapy
     Dates: start: 2009, end: 2011
  31. AMITRIPTYLINE [Concomitant]
     Active Substance: AMITRIPTYLINE
     Indication: Depression
     Dates: start: 2009
  32. HALDOL [Concomitant]
     Active Substance: HALOPERIDOL
     Indication: Depression
     Dates: start: 2009
  33. ACETAMINOPHEN [Concomitant]
     Active Substance: ACETAMINOPHEN
     Indication: Pain
     Dates: start: 2017, end: 2020
  34. IBUPROFEN [Concomitant]
     Active Substance: IBUPROFEN
     Indication: Pain
     Dates: start: 2017, end: 2020
  35. ZANTAC [Concomitant]
     Active Substance: RANITIDINE HYDROCHLORIDE
     Dates: start: 2008, end: 2009
  36. TUMS [Concomitant]
     Active Substance: CALCIUM CARBONATE
     Dates: start: 2008, end: 2009
  37. PEPTO-BISMOL [Concomitant]
     Active Substance: BISMUTH SUBSALICYLATE
     Dates: start: 2008, end: 2009
  38. ROLAIDS [Concomitant]
     Active Substance: CALCIUM CARBONATE\MAGNESIUM HYDROXIDE
     Dates: start: 2008, end: 2009
  39. OXYCODONE [Concomitant]
     Active Substance: OXYCODONE
     Dates: start: 2008, end: 2009
  40. BUDESONIDE [Concomitant]
     Active Substance: BUDESONIDE
     Dates: start: 2008, end: 2009
  41. JANUVIA [Concomitant]
     Active Substance: SITAGLIPTIN PHOSPHATE
     Dates: start: 2008, end: 2009
  42. HYDROCODONE [Concomitant]
     Active Substance: HYDROCODONE
     Dates: start: 2008, end: 2009
  43. SPIRIVA [Concomitant]
     Active Substance: TIOTROPIUM BROMIDE MONOHYDRATE
     Dates: start: 2008, end: 2009
  44. VIAGRA [Concomitant]
     Active Substance: SILDENAFIL CITRATE
     Dates: start: 2008, end: 2009
  45. FLUPENTIXOL/NORTRIPTYLINE [Concomitant]
     Dates: start: 2008, end: 2009
  46. IMDUR [Concomitant]
     Active Substance: ISOSORBIDE MONONITRATE
     Dates: start: 2008, end: 2009
  47. ACTOS [Concomitant]
     Active Substance: PIOGLITAZONE HYDROCHLORIDE
     Dates: start: 2008, end: 2009
  48. METOPROLOL [Concomitant]
     Active Substance: METOPROLOL
     Dates: start: 2008, end: 2009
  49. ATROVENT [Concomitant]
     Active Substance: IPRATROPIUM BROMIDE
     Dates: start: 2008, end: 2009

REACTIONS (6)
  - Death [Fatal]
  - Acute kidney injury [Unknown]
  - Chronic kidney disease [Unknown]
  - Renal failure [Unknown]
  - End stage renal disease [Unknown]
  - Renal ischaemia [Unknown]

NARRATIVE: CASE EVENT DATE: 20090101
